FAERS Safety Report 26173285 (Version 1)
Quarter: 2025Q4

REPORT INFORMATION
  Report Type: Spontaneous
  Country: US (occurrence: US)
  Receive Date: 20251218
  Receipt Date: 20251218
  Transmission Date: 20260118
  Serious: Yes (Death, Hospitalization, Other)
  Sender: CIPLA
  Company Number: US-CIPLA LTD.-2025US15763

PATIENT

DRUGS (1)
  1. BUPROPION [Suspect]
     Active Substance: BUPROPION
     Dosage: APPROXIMATELY 12 GRAM
     Route: 048

REACTIONS (6)
  - Cardiogenic shock [Fatal]
  - Intentional overdose [Fatal]
  - Hypoxia [Unknown]
  - Metabolic acidosis [Unknown]
  - Toxic cardiomyopathy [Unknown]
  - Seizure [Unknown]
